FAERS Safety Report 4577783-3 (Version None)
Quarter: 2005Q1

REPORT INFORMATION
  Report Type: 
  Country: None (occurrence: None)
  Receive Date: 20050209
  Receipt Date: 20050128
  Transmission Date: 20050727
  Serious: Yes (Hospitalization, Other)
  Sender: FDA-Public Use
  Company Number: 207428

PATIENT
  Age: 62 Year
  Sex: Male

DRUGS (10)
  1. RITUXAN [Suspect]
     Indication: MANTLE CELL LYMPHOMA
     Dosage: 375 MG/M2, Q3W; INTRAVENOUS
     Route: 042
     Dates: start: 20030922
  2. GENASENSE [Suspect]
     Indication: MANTLE CELL LYMPHOMA
     Dosage: 3 MG/KG, QD, INTRAVENOUS
     Route: 042
     Dates: start: 20030610, end: 20030925
  3. CYCLOPHOSPHAMIDE [Suspect]
     Indication: MANTLE CELL LYMPHOMA
     Dosage: 750 MG, Q3W, INTRAVENOUS
     Route: 042
     Dates: start: 20030922
  4. DOXORUBICIN HYDROCHLORIDE [Suspect]
     Indication: MANTLE CELL LYMPHOMA
     Dosage: 50 MG/M2, Q3W; INTRAVENOUS
     Route: 042
     Dates: start: 20030922
  5. VINCRISTINE [Suspect]
     Indication: MANTLE CELL LYMPHOMA
     Dosage: 1.4 MG/M2, Q3W; INTRAVENOUS
     Route: 042
     Dates: start: 20030922
  6. PREDNISONE [Suspect]
     Indication: MANTLE CELL LYMPHOMA
     Dosage: 100 MG, X5; ORAL
     Route: 048
     Dates: start: 20030922, end: 20030926
  7. ACETAMINOPHEN [Concomitant]
  8. ALLOPURINOL [Concomitant]
  9. VERAPAMIL [Concomitant]
  10. ESCITALOPRAM OXALATE [Concomitant]

REACTIONS (8)
  - BACK PAIN [None]
  - CULTURE URINE POSITIVE [None]
  - ENTEROCOCCAL INFECTION [None]
  - FATIGUE [None]
  - FEBRILE NEUTROPENIA [None]
  - HAEMATOCRIT DECREASED [None]
  - HAEMOGLOBIN DECREASED [None]
  - PLATELET COUNT DECREASED [None]
